FAERS Safety Report 25216480 (Version 2)
Quarter: 2025Q3

REPORT INFORMATION
  Report Type: Report from Study
  Country: US (occurrence: US)
  Receive Date: 20250419
  Receipt Date: 20250802
  Transmission Date: 20251020
  Serious: Yes (Other)
  Sender: ALEXION PHARMACEUTICALS
  Company Number: US-AstraZeneca-CH-00849666A

PATIENT
  Sex: Female

DRUGS (1)
  1. BENRALIZUMAB [Suspect]
     Active Substance: BENRALIZUMAB
     Route: 065

REACTIONS (2)
  - Hypotension [Unknown]
  - Heart rate increased [Unknown]
